FAERS Safety Report 25283148 (Version 1)
Quarter: 2025Q2

REPORT INFORMATION
  Report Type: Spontaneous
  Country: US (occurrence: None)
  Receive Date: 20250507
  Receipt Date: 20250507
  Transmission Date: 20250717
  Serious: Yes (Other)
  Sender: FDA-CTU
  Company Number: None

PATIENT
  Age: 74 Year
  Sex: Male
  Weight: 85.5 kg

DRUGS (11)
  1. LANTUS SOLOSTAR [Suspect]
     Active Substance: INSULIN GLARGINE
     Indication: Type 2 diabetes mellitus
     Dosage: ??3 INJECTIONS AT BEDTIME SUBCUTANEOUS
     Route: 058
  2. Lisinopril, [Concomitant]
  3. Farxiga, [Concomitant]
  4. ROSUVASTATIN [Concomitant]
     Active Substance: ROSUVASTATIN
  5. Vitamin D, [Concomitant]
  6. Insulin, [Concomitant]
  7. Testosterone, [Concomitant]
  8. Trimix [Concomitant]
  9. VITAMIN D [Concomitant]
     Active Substance: VITAMIN D NOS
  10. ALEVE [Concomitant]
     Active Substance: NAPROXEN SODIUM
  11. ACETAMINOPHEN [Concomitant]
     Active Substance: ACETAMINOPHEN

REACTIONS (2)
  - Product use complaint [None]
  - Product temperature excursion issue [None]

NARRATIVE: CASE EVENT DATE: 20250507
